FAERS Safety Report 8006181-5 (Version None)
Quarter: 2011Q4

REPORT INFORMATION
  Report Type: 
  Country: None (occurrence: None)
  Receive Date: 20111226
  Receipt Date: 20111215
  Transmission Date: 20120403
  Serious: Yes (Other)
  Sender: FDA-Public Use
  Company Number: PHHY2011JP098109

PATIENT
  Sex: Male

DRUGS (12)
  1. ALINAMIN F [Concomitant]
     Dosage: 75 MG, UNK
     Route: 048
     Dates: start: 20100810, end: 20110303
  2. INTERFERON ALFA [Concomitant]
     Indication: METASTATIC RENAL CELL CARCINOMA
     Dosage: 3000000 IU, UNK
     Dates: start: 20100708, end: 20100712
  3. SERMION [Concomitant]
     Dosage: 15 MG, UNK
     Route: 048
     Dates: start: 20100810, end: 20110427
  4. HYDROCHLOROTHIAZIDE [Concomitant]
     Dosage: 12.5 MG, UNK
     Route: 048
     Dates: start: 20100810, end: 20110427
  5. AFINITOR [Suspect]
     Indication: METASTATIC RENAL CELL CARCINOMA
     Dosage: 5 MG, DAILY
     Route: 048
     Dates: start: 20100921, end: 20101014
  6. DIOVAN [Concomitant]
     Dosage: 80 MG, UNK
     Route: 048
     Dates: start: 20100810
  7. CEFAZOLIN SODIUM [Concomitant]
     Dosage: 3 G, UNK
     Route: 048
     Dates: start: 20100810
  8. ALLEGRA [Concomitant]
     Dosage: 120 MG, UNK
     Route: 048
     Dates: start: 20110415
  9. MAGMITT [Concomitant]
     Dosage: 750 MG, UNK
     Route: 048
     Dates: start: 20100810, end: 20110609
  10. ASPIRIN [Concomitant]
     Dosage: 100 MG, UNK
     Route: 048
     Dates: start: 20100810, end: 20101125
  11. ALLOPURINOL [Concomitant]
     Dosage: 100 MG, UNK
     Route: 048
     Dates: start: 20110121, end: 20110427
  12. AFINITOR [Suspect]
     Dosage: 10 MG, DAILY
     Route: 048
     Dates: start: 20101015, end: 20110719

REACTIONS (1)
  - CARDIAC FAILURE CONGESTIVE [None]
